FAERS Safety Report 5222951-0 (Version None)
Quarter: 2007Q1

REPORT INFORMATION
  Report Type: 
  Country: None (occurrence: None)
  Receive Date: 20070129
  Receipt Date: 20070117
  Transmission Date: 20070707
  Serious: Yes (Life-Threatening, Hospitalization)
  Sender: FDA-Public Use
  Company Number: GB-PFIZER INC-2006090415

PATIENT
  Age: 25 Year
  Sex: Male

DRUGS (2)
  1. LYRICA [Suspect]
     Indication: EPILEPSY
     Dosage: DAILY DOSE:400MG
     Route: 048
     Dates: start: 20050110, end: 20060519
  2. OXCARBAZEPINE [Concomitant]
     Route: 048
     Dates: start: 20000110

REACTIONS (3)
  - CONVULSION [None]
  - RENAL FAILURE ACUTE [None]
  - RHABDOMYOLYSIS [None]
